FAERS Safety Report 4849375-X (Version None)
Quarter: 2005Q4

REPORT INFORMATION
  Report Type: 
  Country: None (occurrence: None)
  Receive Date: 20051207
  Receipt Date: 20051117
  Transmission Date: 20060501
  Serious: Yes (Hospitalization)
  Sender: FDA-Public Use
  Company Number: WAES 0511USA00857

PATIENT
  Age: 64 Year
  Sex: Female

DRUGS (10)
  1. ZOCOR [Suspect]
     Dosage: PO
     Route: 048
  2. RHEUMATREX [Suspect]
     Indication: RHEUMATOID ARTHRITIS
  3. PREDNISOLONE [Suspect]
     Indication: RHEUMATOID ARTHRITIS
  4. ALFAROL [Concomitant]
  5. ELCITONIN [Concomitant]
  6. GASTER [Concomitant]
  7. LOBU [Concomitant]
  8. NITOROL [Concomitant]
  9. ULCERLMIN [Concomitant]
  10. VOLTAREN [Concomitant]

REACTIONS (1)
  - HERPES ZOSTER [None]
